FAERS Safety Report 5237442-0 (Version None)
Quarter: 2007Q1

REPORT INFORMATION
  Report Type: 
  Country: None (occurrence: None)
  Receive Date: 20070213
  Receipt Date: 20070201
  Transmission Date: 20070707
  Serious: Yes (Hospitalization)
  Sender: FDA-Public Use
  Company Number: GB-PFIZER INC-2007003595

PATIENT
  Sex: Female
  Weight: 77 kg

DRUGS (20)
  1. SU-011,248 [Suspect]
     Indication: COLORECTAL CANCER METASTATIC
     Route: 048
  2. SU-011,248 [Suspect]
     Route: 048
  3. IRINOTECAN HCL [Suspect]
     Indication: COLORECTAL CANCER METASTATIC
     Route: 042
  4. IRINOTECAN HCL [Suspect]
     Route: 042
  5. FLUOROURACIL [Suspect]
     Indication: COLORECTAL CANCER METASTATIC
     Dosage: DAILY DOSE:5320MG
     Route: 042
  6. FLUOROURACIL [Suspect]
     Dosage: DAILY DOSE:3456MG
     Route: 042
  7. DEXAMETHASONE [Concomitant]
     Dates: start: 20061212, end: 20070102
  8. ATROPINE [Concomitant]
     Dates: start: 20061212, end: 20070102
  9. METOCLOPRAMIDE [Concomitant]
     Dates: start: 20061212, end: 20070114
  10. PARACETAMOL [Concomitant]
     Dates: start: 20070105, end: 20070114
  11. CEFTAZIDIME [Concomitant]
     Dates: start: 20070108, end: 20070112
  12. GENTAMICIN [Concomitant]
     Dates: start: 20070105, end: 20070110
  13. MEROCAINE [Concomitant]
     Dates: start: 20070103
  14. RAMIPRIL [Concomitant]
  15. METOPROLOL TARTRATE [Concomitant]
  16. LOPERAMIDE HCL [Concomitant]
  17. GRANISETRON [Concomitant]
     Dates: start: 20061212, end: 20070102
  18. CODEINE PHOSPHATE [Concomitant]
     Dates: start: 20061218
  19. ALL OTHER THERAPEUTIC PRODUCTS [Concomitant]
     Dates: start: 20070103
  20. CHLORHEXIDINE GLUCONATE [Concomitant]
     Dates: start: 20070104

REACTIONS (1)
  - NEUTROPENIA [None]
